FAERS Safety Report 24071238 (Version 1)
Quarter: 2024Q3

REPORT INFORMATION
  Report Type: Report from Study
  Country: US (occurrence: US)
  Receive Date: 20240710
  Receipt Date: 20240710
  Transmission Date: 20241017
  Serious: No
  Sender: ROCHE
  Company Number: US-ROCHE-3549215

PATIENT
  Age: 7 Year
  Sex: Female
  Weight: 12.7 kg

DRUGS (1)
  1. EVRYSDI [Suspect]
     Active Substance: RISDIPLAM
     Indication: Spinal muscular atrophy
     Dosage: 3.15 MG
     Route: 048
     Dates: start: 20220707

REACTIONS (1)
  - Proteinuria [Not Recovered/Not Resolved]
